FAERS Safety Report 4499282-X (Version None)
Quarter: 2004Q4

REPORT INFORMATION
  Report Type: 
  Country: None (occurrence: None)
  Receive Date: 20041111
  Receipt Date: 20041102
  Transmission Date: 20050328
  Serious: Yes (Death)
  Sender: FDA-Public Use
  Company Number: US-JNJFOC-20040908833

PATIENT
  Age: 35 Year
  Sex: Female

DRUGS (2)
  1. TYLENOL [Suspect]
     Indication: DRUG USE FOR UNKNOWN INDICATION
     Route: 049
  2. ETHYLENE GLYCOL [Suspect]
     Indication: DRUG USE FOR UNKNOWN INDICATION

REACTIONS (15)
  - BLOOD CREATININE INCREASED [None]
  - BRAIN HERNIATION [None]
  - COMA [None]
  - CONVULSION [None]
  - DRUG ABUSER [None]
  - DRUG TOXICITY [None]
  - HAEMODIALYSIS [None]
  - HEART RATE INCREASED [None]
  - HEPATIC FAILURE [None]
  - HEPATIC NECROSIS [None]
  - INTERNATIONAL NORMALISED RATIO INCREASED [None]
  - LETHARGY [None]
  - METABOLIC ACIDOSIS [None]
  - OVERDOSE [None]
  - RESPIRATORY RATE DECREASED [None]
